FAERS Safety Report 12744590 (Version 1)
Quarter: 2016Q3

REPORT INFORMATION
  Report Type: Spontaneous
  Country: US (occurrence: US)
  Receive Date: 20160914
  Receipt Date: 20160914
  Transmission Date: 20161109
  Serious: No
  Sender: FDA-Public Use
  Company Number: US-JAZZ-2016-US-009212

PATIENT
  Sex: Male

DRUGS (43)
  1. ATENOLOL. [Concomitant]
     Active Substance: ATENOLOL
  2. HIBICLENS [Concomitant]
     Active Substance: CHLORHEXIDINE GLUCONATE
  3. TERBINAFINE HCL [Concomitant]
     Active Substance: TERBINAFINE HYDROCHLORIDE
  4. TETANUS AND DIPHTHERIA TOXOIDS ADSORBED [Concomitant]
     Active Substance: CLOSTRIDIUM TETANI\CLOSTRIDIUM TETANI TOXOID ANTIGEN (FORMALDEHYDE INACTIVATED)\CORYNEBACTERIUM DIPHTHERIAE\CORYNEBACTERIUM DIPHTHERIAE TOXOID ANTIGEN (FORMALDEHYDE INACTIVATED)
  5. TRIAMCINOLONE [Concomitant]
     Active Substance: TRIAMCINOLONE
  6. GABAPENTIN. [Concomitant]
     Active Substance: GABAPENTIN
  7. LISINOPRIL. [Concomitant]
     Active Substance: LISINOPRIL
  8. NAFTIN [Concomitant]
     Active Substance: NAFTIFINE HYDROCHLORIDE
  9. ZANTAC [Concomitant]
     Active Substance: RANITIDINE HYDROCHLORIDE
  10. CALCIPOTRIENE. [Concomitant]
     Active Substance: CALCIPOTRIENE
  11. HYDROCHLOROTHIAZIDE. [Concomitant]
     Active Substance: HYDROCHLOROTHIAZIDE
  12. IBUPROFEN. [Concomitant]
     Active Substance: IBUPROFEN
  13. ABILIFY [Concomitant]
     Active Substance: ARIPIPRAZOLE
  14. ACETIC ACID. [Concomitant]
     Active Substance: ACETIC ACID
  15. ACITRETIN. [Concomitant]
     Active Substance: ACITRETIN
  16. CETIRIZINE HCL [Concomitant]
     Active Substance: CETIRIZINE HYDROCHLORIDE
  17. HALOBETASOL PROP [Concomitant]
  18. LIDOCAINE HCL [Concomitant]
     Active Substance: LIDOCAINE HYDROCHLORIDE
  19. PROVIGIL [Concomitant]
     Active Substance: MODAFINIL
  20. UREA. [Concomitant]
     Active Substance: UREA
  21. ATORVASTATIN [Concomitant]
     Active Substance: ATORVASTATIN
  22. BUPROPION HYDROCHLORIDE SR [Concomitant]
     Active Substance: BUPROPION HYDROCHLORIDE
  23. CLOBETASOL [Concomitant]
     Active Substance: CLOBETASOL
  24. DEXTROAMPHETAMINE. [Concomitant]
     Active Substance: DEXTROAMPHETAMINE
  25. ETODOLAC ER [Concomitant]
     Active Substance: ETODOLAC
  26. METFORMIN HCL [Concomitant]
     Active Substance: METFORMIN HYDROCHLORIDE
  27. SORIATANE [Concomitant]
     Active Substance: ACITRETIN
  28. XYREM [Suspect]
     Active Substance: SODIUM OXYBATE
     Dosage: DOSE ADJUSTMENTS
     Route: 048
  29. AMLODIPINE BESYLATE. [Concomitant]
     Active Substance: AMLODIPINE BESYLATE
  30. DOCUSATE SODIUM. [Concomitant]
     Active Substance: DOCUSATE SODIUM
  31. HYDROQUINONE. [Concomitant]
     Active Substance: HYDROQUINONE
  32. MODAFINIL. [Concomitant]
     Active Substance: MODAFINIL
  33. SIMVASTATIN. [Concomitant]
     Active Substance: SIMVASTATIN
  34. VIAGRA [Concomitant]
     Active Substance: SILDENAFIL CITRATE
  35. XYREM [Suspect]
     Active Substance: SODIUM OXYBATE
     Dosage: 3.5 G, BID
     Route: 048
     Dates: start: 201204
  36. BACITRACIN ZINC. [Concomitant]
     Active Substance: BACITRACIN ZINC
  37. LORATADINE. [Concomitant]
     Active Substance: LORATADINE
  38. OMEPRAZOLE DR [Concomitant]
     Active Substance: OMEPRAZOLE
  39. PROTRIPTYLINE HCL [Concomitant]
  40. PSYLLIUM [Concomitant]
     Active Substance: PLANTAGO SEED
  41. XYREM [Suspect]
     Active Substance: SODIUM OXYBATE
     Indication: NARCOLEPSY
     Dosage: 2.25 G, BID
     Route: 048
     Dates: start: 200810, end: 2008
  42. BIOTENE DRY MOUTH [Concomitant]
  43. TRAMADOL HCL [Concomitant]
     Active Substance: TRAMADOL HYDROCHLORIDE

REACTIONS (1)
  - Periodontal disease [Unknown]
